FAERS Safety Report 8026479-4 (Version None)
Quarter: 2012Q1

REPORT INFORMATION
  Report Type: 
  Country: None (occurrence: None)
  Receive Date: 20120105
  Receipt Date: 20111222
  Transmission Date: 20120608
  Serious: Yes (Other)
  Sender: FDA-Public Use
  Company Number: FR-MYLANLABS-2011S1026326

PATIENT
  Age: 36 Year
  Sex: Female

DRUGS (4)
  1. VALPROATE SODIUM [Interacting]
     Dosage: 1500 MG/DAY
     Route: 065
  2. DIAZEPAM [Suspect]
     Indication: AGITATION
     Dosage: 30 MG/DAY
     Route: 065
  3. OLANZAPINE [Interacting]
     Indication: MANIA
     Dosage: 10 MG/DAY
     Route: 065
  4. VALPROATE SODIUM [Interacting]
     Indication: MANIA
     Dosage: 1000 MG/DAY; INCREASED TO 1500 MG/DAY ON DAY 4
     Route: 065

REACTIONS (3)
  - DRUG INTERACTION [None]
  - ENCEPHALOPATHY [None]
  - COMA [None]
